FAERS Safety Report 15088025 (Version 3)
Quarter: 2018Q4

REPORT INFORMATION
  Report Type: Spontaneous
  Country: US (occurrence: US)
  Receive Date: 20180629
  Receipt Date: 20181019
  Transmission Date: 20190204
  Serious: Yes (Hospitalization)
  Sender: FDA-Public Use
  Company Number: US-BEH-2018092212

PATIENT
  Sex: Female
  Weight: 142.86 kg

DRUGS (25)
  1. SODIUM CHLORIDE. [Concomitant]
     Active Substance: SODIUM CHLORIDE
  2. LEVAQUIN [Concomitant]
     Active Substance: LEVOFLOXACIN
  3. HEPARIN [Concomitant]
     Active Substance: HEPARIN SODIUM
  4. PAROXETINE. [Concomitant]
     Active Substance: PAROXETINE
  5. TRAZODONE [Concomitant]
     Active Substance: TRAZODONE HYDROCHLORIDE
  6. HAEGARDA [Suspect]
     Active Substance: HUMAN C1-ESTERASE INHIBITOR
     Indication: PROPHYLAXIS
     Dosage: UNK
     Route: 058
  7. ECOTRIN [Concomitant]
     Active Substance: ASPIRIN
  8. CINRYZE [Concomitant]
     Active Substance: HUMAN C1-ESTERASE INHIBITOR
  9. HAEGARDA [Suspect]
     Active Substance: HUMAN C1-ESTERASE INHIBITOR
     Dosage: UNK
     Route: 058
  10. STERILE WATER [Concomitant]
     Active Substance: WATER
  11. FENTANYL. [Concomitant]
     Active Substance: FENTANYL
  12. HYDROXYZINE [Concomitant]
     Active Substance: HYDROXYZINE HYDROCHLORIDE
  13. HAEGARDA [Suspect]
     Active Substance: HUMAN C1-ESTERASE INHIBITOR
     Indication: HEREDITARY ANGIOEDEMA
     Dosage: 6000 IU, UNK
     Route: 058
     Dates: start: 20180620
  14. HAEGARDA [Suspect]
     Active Substance: HUMAN C1-ESTERASE INHIBITOR
     Dosage: UNK
     Route: 058
  15. GABAPENTIN. [Concomitant]
     Active Substance: GABAPENTIN
  16. EPINEPHRINE. [Concomitant]
     Active Substance: EPINEPHRINE
  17. ZOFRAN [Concomitant]
     Active Substance: ONDANSETRON HYDROCHLORIDE
  18. ROPINIROLE. [Concomitant]
     Active Substance: ROPINIROLE
  19. METFORMIN [Concomitant]
     Active Substance: METFORMIN HYDROCHLORIDE
  20. WARFARIN [Concomitant]
     Active Substance: WARFARIN
  21. DOXYCYCLINE. [Concomitant]
     Active Substance: DOXYCYCLINE
  22. VITAMINS WITH MINERALS [Concomitant]
     Active Substance: MINERALS\VITAMINS
  23. VICODIN [Concomitant]
     Active Substance: ACETAMINOPHEN\HYDROCODONE BITARTRATE
  24. BUPROPION. [Concomitant]
     Active Substance: BUPROPION
  25. MICONAZOLE. [Concomitant]
     Active Substance: MICONAZOLE

REACTIONS (2)
  - Hereditary angioedema [Unknown]
  - Hereditary angioedema [Unknown]

NARRATIVE: CASE EVENT DATE: 2018
